FAERS Safety Report 9740998 (Version 3)
Quarter: 2014Q1

REPORT INFORMATION
  Report Type: Spontaneous
  Country: US (occurrence: US)
  Receive Date: 20131209
  Receipt Date: 20140110
  Transmission Date: 20141002
  Serious: Yes (Other)
  Sender: FDA-Public Use
  Company Number: US-PFIZER INC-2013350265

PATIENT
  Age: 22 Year
  Sex: Female
  Weight: 92.52 kg

DRUGS (8)
  1. LYRICA [Suspect]
     Indication: FIBROMYALGIA
     Dosage: 75 MG, UNK
     Route: 048
     Dates: start: 2009
  2. LYRICA [Suspect]
     Dosage: 75 MG, UNK
     Route: 048
  3. LYRICA [Suspect]
     Dosage: 75 MG, UNK
     Route: 048
  4. LYRICA [Suspect]
     Dosage: 150 MG, 2X/DAY
  5. BENTYL [Concomitant]
     Dosage: UNK
  6. PRILOSEC [Concomitant]
     Dosage: UNK
  7. OMEPRAZOLE [Concomitant]
     Dosage: 20 MG, 1X/DAY
  8. DICYCLOMINE [Concomitant]
     Dosage: 20 MG, 2X/DAY

REACTIONS (3)
  - Drug withdrawal syndrome [Unknown]
  - Convulsion [Unknown]
  - Dyskinesia [Unknown]
